FAERS Safety Report 6417717-X (Version None)
Quarter: 2009Q4

REPORT INFORMATION
  Report Type: 
  Country: None (occurrence: None)
  Receive Date: 20091028
  Receipt Date: 20091023
  Transmission Date: 20100525
  Serious: Yes (Hospitalization)
  Sender: FDA-Public Use
  Company Number: PT-ASTRAZENECA-2009SE22154

PATIENT
  Age: 70 Year
  Sex: Female
  Weight: 54 kg

DRUGS (4)
  1. VISACOR [Suspect]
     Indication: HYPERCHOLESTEROLAEMIA
     Route: 048
     Dates: start: 20090701, end: 20090801
  2. CETRIZINE DIHYDROCHLORIDE [Concomitant]
     Dosage: 1 UNITARY DOSE
     Route: 048
  3. FLAVONOIDS EXTRACTED FROM RUTACEA [Concomitant]
     Dosage: 1 UNITARY DOSE
     Route: 048
  4. TRIMETAZIDINE DIHYDROCHLORIDE [Concomitant]
     Dosage: 1 UNITARY DOSE
     Route: 048

REACTIONS (1)
  - DRY MOUTH [None]
